FAERS Safety Report 8068395-8 (Version None)
Quarter: 2012Q1

REPORT INFORMATION
  Report Type: 
  Country: None (occurrence: None)
  Receive Date: 20120124
  Receipt Date: 20111024
  Transmission Date: 20120608
  Serious: No
  Sender: FDA-Public Use
  Company Number: US-AMGEN-USASP2011055164

PATIENT
  Age: 82 Year
  Sex: Female

DRUGS (16)
  1. SIMVASTATIN [Concomitant]
     Dosage: UNK
  2. VITAMIN B-12 [Concomitant]
     Dosage: UNK
  3. VITAMIN D [Concomitant]
     Dosage: UNK
  4. PROLIA [Suspect]
     Indication: OSTEOPOROSIS POSTMENOPAUSAL
     Dosage: 60 MG, Q6MO
     Dates: start: 20111007
  5. ASPIRIN [Concomitant]
     Dosage: UNK
  6. ALBUTEROL [Concomitant]
     Dosage: UNK
  7. PROPOXYPHENE HYDROCHLORIDE [Concomitant]
     Dosage: UNK
  8. OXYBUTYNIN [Concomitant]
     Dosage: UNK
  9. ASCORBIC ACID [Concomitant]
     Dosage: UNK
  10. CITRACAL [Concomitant]
     Dosage: UNK
  11. CALCIUM [Concomitant]
     Dosage: UNK
  12. NASAL SPRAY II [Concomitant]
     Dosage: UNK
  13. STOOL SOFTENER [Concomitant]
     Dosage: UNK
  14. FUROSEMIDE [Concomitant]
     Dosage: UNK
  15. AMLODIPINE [Concomitant]
     Dosage: UNK
  16. LOSARTAN POTASSIUM [Concomitant]
     Dosage: UNK

REACTIONS (6)
  - WALKING AID USER [None]
  - SNEEZING [None]
  - BLADDER DISORDER [None]
  - MUSCLE SPASMS [None]
  - RETCHING [None]
  - ABASIA [None]
